FAERS Safety Report 6835779-2 (Version None)
Quarter: 2010Q3

REPORT INFORMATION
  Report Type: 
  Country: None (occurrence: None)
  Receive Date: 20100713
  Receipt Date: 20100629
  Transmission Date: 20110219
  Serious: No
  Sender: FDA-Public Use
  Company Number: US-B.I. PHARMACEUTICALS,INC./RIDGEFIELD-2010-BP-07465BP

PATIENT
  Sex: Male

DRUGS (6)
  1. SPIRIVA [Suspect]
     Indication: WHEEZING
     Dosage: 18 MCG
     Route: 055
     Dates: start: 20100531
  2. LOVASTATIN [Concomitant]
     Indication: BLOOD CHOLESTEROL INCREASED
     Dosage: 40 MG
     Route: 048
  3. PRAMIPEXOLE DIHYDROCHLORIDE [Concomitant]
     Indication: PARKINSON'S DISEASE
     Dosage: 4.5 MG
     Route: 048
  4. VENTOLIN HFA [Concomitant]
     Indication: WHEEZING
  5. IPRATROPIUM BROMIDE [Concomitant]
     Indication: RHINORRHOEA
  6. FLUTICASONE PROPIONATE [Concomitant]
     Indication: RHINORRHOEA

REACTIONS (1)
  - ALOPECIA [None]
